FAERS Safety Report 7965699-1 (Version None)
Quarter: 2011Q4

REPORT INFORMATION
  Report Type: 
  Country: None (occurrence: None)
  Receive Date: 20111208
  Receipt Date: 20111202
  Transmission Date: 20120403
  Serious: Yes (Other)
  Sender: FDA-Public Use
  Company Number: US-ELI_LILLY_AND_COMPANY-US201012001482

PATIENT
  Sex: Male

DRUGS (6)
  1. PROTONIX [Concomitant]
     Dosage: UNK, UNK
     Dates: end: 20101211
  2. ANTIHYPERTENSIVES [Concomitant]
     Indication: HYPERTENSION
  3. LOVASTATIN [Concomitant]
     Dates: end: 20100825
  4. FLUTICASONE PROPIONATE [Concomitant]
     Dates: end: 20100825
  5. FENOFIBRATE [Concomitant]
     Dates: start: 20100825
  6. CIALIS [Suspect]
     Dates: end: 20100825

REACTIONS (4)
  - PAPILLOEDEMA [None]
  - TINNITUS [None]
  - OPTIC NERVE DISORDER [None]
  - CATARACT NUCLEAR [None]
